FAERS Safety Report 5591132-3 (Version None)
Quarter: 2008Q1

REPORT INFORMATION
  Report Type: 
  Country: None (occurrence: None)
  Receive Date: 20080110
  Receipt Date: 20080110
  Transmission Date: 20080703
  Serious: Yes (Hospitalization)
  Sender: FDA-Public Use
  Company Number: None

PATIENT
  Sex: Female
  Weight: 62.8 kg

DRUGS (4)
  1. CARBOPLATIN [Suspect]
     Dosage: 407 MG
     Dates: end: 20071218
  2. TAXOL [Suspect]
     Dosage: 294 MG
     Dates: end: 20071218
  3. LEXAPRO [Concomitant]
  4. SYNTHROID [Concomitant]

REACTIONS (1)
  - ILEUS [None]
